FAERS Safety Report 13064390 (Version 2)
Quarter: 2016Q4

REPORT INFORMATION
  Report Type: Spontaneous
  Country: DZ (occurrence: DZ)
  Receive Date: 20161227
  Receipt Date: 20161228
  Transmission Date: 20170207
  Serious: Yes (Other)
  Sender: FDA-Public Use
  Company Number: DZ-JNJFOC-20161217062

PATIENT
  Age: 79 Year
  Sex: Male

DRUGS (2)
  1. SINTROM [Concomitant]
     Active Substance: ACENOCOUMAROL
     Indication: AORTIC VALVE INCOMPETENCE
     Route: 065
  2. ZYTIGA [Suspect]
     Active Substance: ABIRATERONE ACETATE
     Indication: PROSTATE CANCER
     Route: 048
     Dates: start: 20161208

REACTIONS (5)
  - International normalised ratio abnormal [Unknown]
  - Prothrombin time abnormal [Unknown]
  - Rhabdomyolysis [Unknown]
  - Endocarditis [Unknown]
  - Aspartate aminotransferase increased [Unknown]

NARRATIVE: CASE EVENT DATE: 201612
